FAERS Safety Report 25124498 (Version 1)
Quarter: 2025Q1

REPORT INFORMATION
  Report Type: Spontaneous
  Country: US (occurrence: US)
  Receive Date: 20250326
  Receipt Date: 20250326
  Transmission Date: 20250409
  Serious: No
  Sender: BAYER HEALTHCARE PHARMACEUTICALS INC.
  Company Number: US-BAYER-2024A171696

PATIENT
  Age: 24 Year
  Sex: Female

DRUGS (3)
  1. KYLEENA [Suspect]
     Active Substance: LEVONORGESTREL
     Indication: Contraception
     Dosage: 17.5?G/DAY
     Route: 015
     Dates: start: 202411
  2. DUPIXENT [Concomitant]
     Active Substance: DUPILUMAB
  3. RINVOQ [Concomitant]
     Active Substance: UPADACITINIB
     Dates: end: 202502

REACTIONS (1)
  - Acne [None]
